FAERS Safety Report 7602263-8 (Version None)
Quarter: 2011Q3

REPORT INFORMATION
  Report Type: 
  Country: None (occurrence: None)
  Receive Date: 20110711
  Receipt Date: 20110706
  Transmission Date: 20111222
  Serious: Yes (Hospitalization, Other)
  Sender: FDA-Public Use
  Company Number: DE-ABBOTT-10P-062-0658219-00

PATIENT
  Sex: Female
  Weight: 58 kg

DRUGS (3)
  1. HUMIRA [Suspect]
     Indication: RHEUMATOID ARTHRITIS
     Route: 058
     Dates: start: 20070711, end: 20100526
  2. ANALGETIC DRUG [Concomitant]
     Indication: RHEUMATOID ARTHRITIS
  3. HUMALOG [Concomitant]
     Indication: DIABETES MELLITUS

REACTIONS (3)
  - SEPSIS [None]
  - VASCULITIS [None]
  - LEUKOCYTOCLASTIC VASCULITIS [None]
